FAERS Safety Report 5146412-2 (Version None)
Quarter: 2006Q4

REPORT INFORMATION
  Report Type: 
  Country: None (occurrence: None)
  Receive Date: 20061102
  Receipt Date: 20061023
  Transmission Date: 20070319
  Serious: Yes (Other)
  Sender: FDA-Public Use
  Company Number: 2006130150

PATIENT
  Age: 52 Year
  Sex: Male

DRUGS (1)
  1. IRINOTECAN HCL [Suspect]
     Indication: COLON CANCER METASTATIC

REACTIONS (5)
  - DRUG ABUSER [None]
  - HOMICIDE [None]
  - METABOLIC ENCEPHALOPATHY [None]
  - NEOPLASM [None]
  - PSYCHOTIC DISORDER [None]
